FAERS Safety Report 7637625-6 (Version None)
Quarter: 2011Q3

REPORT INFORMATION
  Report Type: 
  Country: None (occurrence: None)
  Receive Date: 20110726
  Receipt Date: 20110719
  Transmission Date: 20111222
  Serious: Yes (Hospitalization)
  Sender: FDA-Public Use
  Company Number: GXKR2011DE02356

PATIENT
  Age: 69 Year
  Sex: Female

DRUGS (1)
  1. DICLOFENAC SODIUM [Suspect]
     Indication: EXOSTOSIS
     Dosage: UNK MG, ONCE/SINGLE
     Route: 048
     Dates: start: 20110701

REACTIONS (9)
  - MUSCLE SPASMS [None]
  - DIZZINESS [None]
  - C-REACTIVE PROTEIN INCREASED [None]
  - TACHYCARDIA [None]
  - HYPERHIDROSIS [None]
  - BLADDER PAIN [None]
  - FATIGUE [None]
  - ABDOMINAL PAIN [None]
  - DYSPHAGIA [None]
